FAERS Safety Report 23624262 (Version 2)
Quarter: 2024Q1

REPORT INFORMATION
  Report Type: Spontaneous
  Country: FR (occurrence: FR)
  Receive Date: 20240312
  Receipt Date: 20240319
  Transmission Date: 20240410
  Serious: Yes (Other)
  Sender: FDA-Public Use
  Company Number: FR-MLMSERVICE-20240227-4853633-1

PATIENT
  Age: 53 Year
  Sex: Male

DRUGS (13)
  1. TRIAMCINOLONE ACETONIDE [Suspect]
     Active Substance: TRIAMCINOLONE ACETONIDE
     Indication: Immune recovery uveitis
     Route: 057
     Dates: start: 2023
  2. TRIAMCINOLONE ACETONIDE [Suspect]
     Active Substance: TRIAMCINOLONE ACETONIDE
     Indication: Immune reconstitution inflammatory syndrome
  3. TRIAMCINOLONE ACETONIDE [Suspect]
     Active Substance: TRIAMCINOLONE ACETONIDE
     Indication: Whipple^s disease
  4. BETAMETHASONE [Suspect]
     Active Substance: BETAMETHASONE\BETAMETHASONE DIPROPIONATE
     Indication: Uveitis
     Route: 057
     Dates: start: 2020
  5. METHYLPREDNISOLONE [Suspect]
     Active Substance: METHYLPREDNISOLONE
     Indication: Whipple^s disease
     Route: 042
     Dates: start: 2020
  6. METHYLPREDNISOLONE [Suspect]
     Active Substance: METHYLPREDNISOLONE
     Indication: Immune reconstitution inflammatory syndrome
  7. METHYLPREDNISOLONE [Suspect]
     Active Substance: METHYLPREDNISOLONE
     Indication: Immune recovery uveitis
  8. PREDNISONE [Suspect]
     Active Substance: PREDNISONE
     Indication: Immune reconstitution inflammatory syndrome
     Route: 048
     Dates: start: 2020
  9. PREDNISONE [Suspect]
     Active Substance: PREDNISONE
     Indication: Whipple^s disease
  10. PREDNISONE [Suspect]
     Active Substance: PREDNISONE
     Indication: Immune recovery uveitis
  11. DEXAMETHASONE [Suspect]
     Active Substance: DEXAMETHASONE
     Indication: Immune recovery uveitis
     Route: 050
     Dates: start: 2023
  12. DEXAMETHASONE [Suspect]
     Active Substance: DEXAMETHASONE
     Indication: Whipple^s disease
  13. DEXAMETHASONE [Suspect]
     Active Substance: DEXAMETHASONE
     Indication: Immune reconstitution inflammatory syndrome

REACTIONS (2)
  - Cataract [Unknown]
  - Intraocular pressure increased [Unknown]

NARRATIVE: CASE EVENT DATE: 20230101
